FAERS Safety Report 9252392 (Version 1)
Quarter: 2013Q1

REPORT INFORMATION
  Report Type: Spontaneous
  Country: US (occurrence: None)
  Receive Date: 20130305
  Receipt Date: 20130305
  Transmission Date: 20140127
  Serious: Yes (Hospitalization)
  Sender: FDA-Public Use
  Company Number: 163-21880-12092520

PATIENT
  Age: 73 Year
  Sex: Male

DRUGS (2)
  1. REVLIMID (LENALIDOMIDE) CAPSULES [Suspect]
     Indication: PLASMA CELL MYELOMA
     Dosage: 08/07/2012 - 08/31/2012, CAPSULE, 15 MG, 21 IN 28 D, PO
  2. DECADRON (DEXAMETHASONE) [Concomitant]

REACTIONS (1)
  - Pyrexia [None]
